FAERS Safety Report 16234006 (Version 4)
Quarter: 2020Q2

REPORT INFORMATION
  Report Type: Report from Study
  Country: US (occurrence: US)
  Receive Date: 20190424
  Receipt Date: 20200507
  Transmission Date: 20200713
  Serious: Yes (Other)
  Sender: FDA-Public Use
  Company Number: US-BIOVITRUM-2019US0806

PATIENT
  Age: 19 Year
  Sex: Male
  Weight: 29 kg

DRUGS (8)
  1. VANCOMYCIN [Concomitant]
     Active Substance: VANCOMYCIN
  2. DEXTROPROPOXYPHENE [Concomitant]
     Active Substance: PROPOXYPHENE HYDROCHLORIDE
  3. GENTAMICIN. [Concomitant]
     Active Substance: GENTAMICIN
  4. MOTRIN [Concomitant]
     Active Substance: IBUPROFEN
  5. KINERET [Suspect]
     Active Substance: ANAKINRA
     Indication: DEFICIENCY OF THE INTERLEUKIN-1 RECEPTOR ANTAGONIST
     Dosage: DOSE AT THE ONSET OF EVENT
     Route: 058
     Dates: start: 20080730
  6. AMPICILLIN [Concomitant]
     Active Substance: AMPICILLIN
  7. INTERFERON GAMMA NOS [Concomitant]
     Active Substance: INTERFERON GAMMA
  8. CODEINE [Concomitant]
     Active Substance: CODEINE

REACTIONS (1)
  - Mitral valve incompetence [Not Recovered/Not Resolved]

NARRATIVE: CASE EVENT DATE: 20160201
